FAERS Safety Report 18393877 (Version 2)
Quarter: 2020Q4

REPORT INFORMATION
  Report Type: Spontaneous
  Country: US (occurrence: US)
  Receive Date: 20201016
  Receipt Date: 20201125
  Transmission Date: 20210114
  Serious: No
  Sender: FDA-Public Use
  Company Number: NVSC2020US273873

PATIENT
  Age: 1 Month
  Sex: Male
  Weight: 5 kg

DRUGS (2)
  1. ZOLGENSMA [Suspect]
     Active Substance: ONASEMNOGENE ABEPARVOVEC-XIOI
     Indication: SPINAL MUSCULAR ATROPHY
     Dosage: UNK (1.1 X 10*14 VECTOR GENOMES (VG) KG OF THE BODY WT)
     Route: 042
     Dates: start: 20200923, end: 20200923
  2. ZOLGENSMA [Suspect]
     Active Substance: ONASEMNOGENE ABEPARVOVEC-XIOI
     Dosage: UNK
     Route: 042
     Dates: start: 20201116

REACTIONS (2)
  - Neutrophil count abnormal [Unknown]
  - Muscle disorder [Unknown]

NARRATIVE: CASE EVENT DATE: 20201007
